FAERS Safety Report 14924006 (Version 1)
Quarter: 2018Q2

REPORT INFORMATION
  Report Type: Spontaneous
  Country: US (occurrence: US)
  Receive Date: 20180503
  Receipt Date: 20180503
  Transmission Date: 20180711
  Serious: Yes (Disabling)
  Sender: FDA-Public Use
  Company Number: None

PATIENT
  Age: 62 Year
  Sex: Female
  Weight: 89.55 kg

DRUGS (5)
  1. ELIQUIS [Suspect]
     Active Substance: APIXABAN
     Indication: COAGULOPATHY
     Dosage: ?          QUANTITY:1 TABLET(S);?
     Route: 048
     Dates: start: 20180201, end: 20180420
  2. LASIX [Concomitant]
     Active Substance: FUROSEMIDE
  3. POTASSIUM [Concomitant]
     Active Substance: POTASSIUM
  4. PHOTONIX [Concomitant]
  5. MULTIVITAMIN [Concomitant]
     Active Substance: VITAMINS

REACTIONS (3)
  - Arthralgia [None]
  - Myalgia [None]
  - Middle insomnia [None]

NARRATIVE: CASE EVENT DATE: 20180402
